FAERS Safety Report 14061924 (Version 3)
Quarter: 2017Q4

REPORT INFORMATION
  Report Type: Spontaneous
  Country: IT (occurrence: IT)
  Receive Date: 20171009
  Receipt Date: 20171024
  Transmission Date: 20180321
  Serious: Yes (Hospitalization)
  Sender: FDA-Public Use
  Company Number: IT-SUN PHARMACEUTICAL INDUSTRIES LTD-2017RR-151465

PATIENT
  Age: 51 Year
  Sex: Female

DRUGS (2)
  1. PAROXETINE. [Suspect]
     Active Substance: PAROXETINE
     Indication: INTENTIONAL SELF-INJURY
     Dosage: 280 MG TOTAL
     Route: 048
     Dates: start: 20170328, end: 20170328
  2. DELORAZEPAM [Suspect]
     Active Substance: DELORAZEPAM
     Indication: INTENTIONAL SELF-INJURY
     Dosage: 10 ML TOTAL
     Route: 048
     Dates: start: 20170328, end: 20170328

REACTIONS (4)
  - Drug abuse [Unknown]
  - Intentional self-injury [Unknown]
  - Tremor [Unknown]
  - Sopor [Unknown]

NARRATIVE: CASE EVENT DATE: 20170328
